FAERS Safety Report 4788932-6 (Version None)
Quarter: 2005Q4

REPORT INFORMATION
  Report Type: 
  Country: None (occurrence: None)
  Receive Date: 20051004
  Receipt Date: 20050923
  Transmission Date: 20060501
  Serious: Yes (Hospitalization)
  Sender: FDA-Public Use
  Company Number: 2005SP002474

PATIENT
  Age: 63 Year
  Sex: Female
  Weight: 55.7924 kg

DRUGS (1)
  1. LUNESTA [Suspect]
     Indication: INSOMNIA
     Dosage: 3 MG; ORAL
     Route: 048
     Dates: start: 20050819, end: 20050819

REACTIONS (2)
  - AGITATION [None]
  - PSYCHOTIC DISORDER [None]
